FAERS Safety Report 4349945-1 (Version None)
Quarter: 2004Q2

REPORT INFORMATION
  Report Type: 
  Country: None (occurrence: None)
  Receive Date: 20040426
  Receipt Date: 20040413
  Transmission Date: 20050107
  Serious: Yes (Hospitalization, Other)
  Sender: FDA-Public Use
  Company Number: US-JNJFOC-20040202530

PATIENT
  Age: 58 Year
  Sex: Female

DRUGS (5)
  1. ULTRAM [Suspect]
     Indication: BACK PAIN
     Dosage: 50 MG 2 IN 1 DAY ORAL
     Route: 048
  2. PLAVIX [Concomitant]
  3. ZOCOR [Concomitant]
  4. NPH INSULIN [Concomitant]
  5. HUMULIN N [Concomitant]

REACTIONS (2)
  - GANGRENE [None]
  - TOE AMPUTATION [None]
